FAERS Safety Report 4999534-0 (Version None)
Quarter: 2006Q2

REPORT INFORMATION
  Report Type: 
  Country: None (occurrence: None)
  Receive Date: 20060511
  Receipt Date: 20051019
  Transmission Date: 20061013
  Serious: Yes (Disabling, Other)
  Sender: FDA-Public Use
  Company Number: US-MERCK-0510USA08005

PATIENT
  Age: 40 Year
  Sex: Male
  Weight: 77 kg

DRUGS (13)
  1. VIOXX [Suspect]
     Indication: BACK DISORDER
     Route: 048
     Dates: start: 20010801, end: 20030114
  2. CLARITIN [Concomitant]
     Indication: HYPERSENSITIVITY
     Route: 065
  3. METHOCARBAMOL [Concomitant]
     Route: 065
  4. METHYLPREDNISOLONE [Concomitant]
     Route: 065
  5. VICOPROFEN [Concomitant]
     Route: 065
  6. CEDAX [Concomitant]
     Route: 065
  7. ZYRTEC [Concomitant]
     Route: 065
  8. HYDROCODONE BITARTRATE [Concomitant]
     Route: 065
  9. AVELOX [Concomitant]
     Route: 065
  10. LIPITOR [Concomitant]
     Route: 065
     Dates: start: 20020101, end: 20040101
  11. ALPRAZOLAM [Concomitant]
     Indication: ANXIETY
     Route: 065
  12. ZETIA [Concomitant]
     Indication: CARDIAC DISORDER
     Route: 048
  13. METOPROLOL [Concomitant]
     Route: 065

REACTIONS (10)
  - CARDIAC DISORDER [None]
  - CHEST PAIN [None]
  - CORONARY ARTERY DISEASE [None]
  - DYSPHAGIA [None]
  - GALLBLADDER DISORDER [None]
  - GASTRIC DISORDER [None]
  - HAEMORRHAGE [None]
  - MYOCARDIAL INFARCTION [None]
  - THROMBOSIS [None]
  - ULCER HAEMORRHAGE [None]
